FAERS Safety Report 6298130-5 (Version None)
Quarter: 2009Q3

REPORT INFORMATION
  Report Type: 
  Country: None (occurrence: None)
  Receive Date: 20090805
  Receipt Date: 20090727
  Transmission Date: 20100115
  Serious: Yes (Hospitalization)
  Sender: FDA-Public Use
  Company Number: FR-ASTRAZENECA-2009CG01250

PATIENT
  Age: 79 Year
  Sex: Female
  Weight: 59 kg

DRUGS (2)
  1. FASLODEX [Suspect]
     Indication: BREAST CANCER METASTATIC
     Route: 030
     Dates: start: 20090101
  2. ZOMETA [Concomitant]
     Indication: BONE CANCER METASTATIC
     Route: 042
     Dates: start: 20090101

REACTIONS (1)
  - GASTRIC ULCER PERFORATION, OBSTRUCTIVE [None]
